FAERS Safety Report 21275567 (Version 1)
Quarter: 2022Q3

REPORT INFORMATION
  Report Type: Report from Study
  Country: US (occurrence: US)
  Receive Date: 20220831
  Receipt Date: 20220831
  Transmission Date: 20221027
  Serious: No
  Sender: FDA-Public Use
  Company Number: US-SHIONOGI, INC-2022000520

PATIENT
  Age: 55 Year
  Sex: Male
  Weight: 68 kg

DRUGS (3)
  1. FETROJA [Suspect]
     Active Substance: CEFIDEROCOL SULFATE TOSYLATE
     Indication: Bacterial infection
     Dosage: 0.75 G, 12 HOUR (3 HR INFUSION)
     Route: 042
     Dates: start: 20210208, end: 20210223
  2. FETROJA [Suspect]
     Active Substance: CEFIDEROCOL SULFATE TOSYLATE
     Indication: Evidence based treatment
  3. LINEZOLID [Concomitant]
     Active Substance: LINEZOLID
     Indication: Bacterial infection
     Dosage: UNK
     Route: 042
     Dates: start: 20210208, end: 20210211

REACTIONS (1)
  - Clostridium difficile colitis [Recovered/Resolved]

NARRATIVE: CASE EVENT DATE: 20210219
